FAERS Safety Report 9100181 (Version 1)
Quarter: 2013Q1

REPORT INFORMATION
  Report Type: Report from Study
  Country: US (occurrence: US)
  Receive Date: 20130215
  Receipt Date: 20130215
  Transmission Date: 20140127
  Serious: Yes (Hospitalization)
  Sender: FDA-Public Use
  Company Number: US-BAYER-2013-019507

PATIENT
  Age: 54 Year
  Sex: Female

DRUGS (8)
  1. BETASERON [Suspect]
     Indication: SECONDARY PROGRESSIVE MULTIPLE SCLEROSIS
     Dosage: 8 MIU, QOD
     Dates: start: 20121222
  2. CORTICOSTEROIDS [Suspect]
     Indication: PAIN
     Dosage: UNK
     Route: 042
     Dates: start: 20130126, end: 20130128
  3. CORTICOSTEROIDS [Suspect]
     Indication: MUSCULOSKELETAL STIFFNESS
  4. CORTICOSTEROIDS [Suspect]
     Indication: ABASIA
  5. IRON [Concomitant]
  6. VITAMIN D [Concomitant]
  7. HYDROCHLOROTHIAZIDE [Concomitant]
  8. ALBUTEROL [Concomitant]

REACTIONS (8)
  - Influenza [Recovered/Resolved]
  - Pyrexia [Recovered/Resolved]
  - Diarrhoea [Recovered/Resolved]
  - Pain [Recovering/Resolving]
  - Musculoskeletal stiffness [Recovering/Resolving]
  - Abasia [Recovering/Resolving]
  - Malaise [Recovered/Resolved]
  - Suicidal ideation [Recovered/Resolved]
